FAERS Safety Report 16683552 (Version 1)
Quarter: 2019Q3

REPORT INFORMATION
  Report Type: Spontaneous
  Country: US (occurrence: US)
  Receive Date: 20190808
  Receipt Date: 20190808
  Transmission Date: 20191004
  Serious: No
  Sender: FDA-Public Use
  Company Number: US-ALLERGAN-1911635US

PATIENT
  Age: 66 Year
  Sex: Male

DRUGS (9)
  1. ANDRODERM [Suspect]
     Active Substance: TESTOSTERONE
     Dosage: 1 DF, QD
     Route: 062
     Dates: start: 20190222, end: 20190223
  2. ANDRODERM [Suspect]
     Active Substance: TESTOSTERONE
     Dosage: 1 DF, QD
     Route: 062
  3. AMLODIPINE [Concomitant]
     Active Substance: AMLODIPINE BESYLATE
     Indication: HYPERTENSION
     Dosage: UNK
     Route: 048
  4. LISINOPRIL. [Concomitant]
     Active Substance: LISINOPRIL
     Indication: HYPERTENSION
     Dosage: UNK
     Route: 048
  5. CIALIS [Concomitant]
     Active Substance: TADALAFIL
     Indication: BLOOD TESTOSTERONE DECREASED
     Dosage: 5 MG, QD
     Route: 048
  6. ANDRODERM [Suspect]
     Active Substance: TESTOSTERONE
     Indication: ANDROGEN REPLACEMENT THERAPY
     Dosage: 1 DF, QD
     Route: 062
     Dates: end: 20190225
  7. METFORMIN [Concomitant]
     Active Substance: METFORMIN HYDROCHLORIDE
     Indication: TYPE 2 DIABETES MELLITUS
     Dosage: UNK
     Route: 048
  8. ATORVASTATIN [Concomitant]
     Active Substance: ATORVASTATIN
     Indication: BLOOD CHOLESTEROL INCREASED
     Dosage: UNK
     Route: 048
  9. ANDRODERM [Suspect]
     Active Substance: TESTOSTERONE
     Dosage: 1 DF, QD
     Route: 062
     Dates: start: 20190221, end: 20190222

REACTIONS (4)
  - Application site pruritus [Recovered/Resolved]
  - Application site rash [Recovered/Resolved]
  - Application site vesicles [Recovered/Resolved]
  - Application site urticaria [Recovered/Resolved]

NARRATIVE: CASE EVENT DATE: 20190222
